FAERS Safety Report 6795029-2 (Version None)
Quarter: 2010Q2

REPORT INFORMATION
  Report Type: 
  Country: None (occurrence: None)
  Receive Date: 20100625
  Receipt Date: 20100614
  Transmission Date: 20101027
  Serious: Yes (Other)
  Sender: FDA-Public Use
  Company Number: PHFR2010GB00535

PATIENT
  Sex: Male

DRUGS (9)
  1. CLOZARIL [Suspect]
     Indication: SCHIZOPHRENIA
     Dosage: 650MG/DAY
     Route: 048
     Dates: start: 20000120
  2. VALPROATE SODIUM [Concomitant]
     Dosage: 700 MG, BID
     Route: 048
  3. OMEPRAZOLE [Concomitant]
     Dosage: 40 MG, TID
     Route: 048
  4. HYOSCINE HBR HYT [Concomitant]
     Dosage: 300 UG, TID
     Route: 048
  5. SALBUTAMOL [Concomitant]
  6. TIOTROPIUM [Concomitant]
  7. SERETIDE ^ALLEN + HANBURYS LTD^ [Concomitant]
     Dosage: TWICE A DAY
  8. OMACOR [Concomitant]
  9. SENNA [Concomitant]

REACTIONS (3)
  - IDIOPATHIC THROMBOCYTOPENIC PURPURA [None]
  - LOWER RESPIRATORY TRACT INFECTION [None]
  - PLATELET COUNT DECREASED [None]
